FAERS Safety Report 10331571 (Version 1)
Quarter: 2014Q3

REPORT INFORMATION
  Report Type: Spontaneous
  Country: CA (occurrence: CA)
  Receive Date: 20140722
  Receipt Date: 20140722
  Transmission Date: 20150326
  Serious: Yes (Hospitalization, Other)
  Sender: FDA-Public Use
  Company Number: CA-WATSON-2014-15491

PATIENT
  Age: 45 Year
  Sex: Female

DRUGS (1)
  1. PREDNISONE (UNKNOWN) [Suspect]
     Active Substance: PREDNISONE
     Indication: OPTIC NEURITIS
     Dosage: 1250 MG, DAILY
     Route: 048

REACTIONS (4)
  - Sinus bradycardia [Recovered/Resolved]
  - Oedema peripheral [Unknown]
  - Headache [Recovered/Resolved]
  - Blood glucose increased [Unknown]
